FAERS Safety Report 8408119-5 (Version None)
Quarter: 2012Q2

REPORT INFORMATION
  Report Type: 
  Country: None (occurrence: None)
  Receive Date: 20120604
  Receipt Date: 20120525
  Transmission Date: 20120825
  Serious: Yes (Other)
  Sender: FDA-Public Use
  Company Number: US-ASTRAZENECA-2010SE33790

PATIENT
  Age: 56 Year
  Sex: Female

DRUGS (13)
  1. HYDROCODONE [Suspect]
     Indication: BACK PAIN
     Dosage: 10/325 MGS
  2. REQUIP [Concomitant]
     Indication: RESTLESS LEGS SYNDROME
  3. PROLIA [Suspect]
     Indication: OSTEOPOROSIS
     Dates: start: 20110901, end: 20120401
  4. LIPITOR [Concomitant]
     Indication: BLOOD CHOLESTEROL INCREASED
     Route: 048
  5. CELEXA [Suspect]
  6. CALCIUM WITH VITAMIN D [Concomitant]
  7. DEPAKOTE [Concomitant]
  8. RHINOCORT [Suspect]
     Route: 045
  9. LAMICTAL [Concomitant]
     Indication: CONVULSION
  10. NEXIUM [Suspect]
     Indication: GASTROOESOPHAGEAL REFLUX DISEASE
     Route: 048
     Dates: start: 20040101
  11. SYMBICORT [Suspect]
     Route: 055
  12. LISINOPRIL [Suspect]
     Indication: BLOOD PRESSURE
     Route: 048
  13. HYDROCODONE [Suspect]
     Dosage: 5/325 MGS

REACTIONS (20)
  - PAIN [None]
  - HEARING IMPAIRED [None]
  - BONE FRAGMENTATION [None]
  - MULTIPLE FRACTURES [None]
  - DYSSTASIA [None]
  - DRUG INTOLERANCE [None]
  - INTERVERTEBRAL DISC PROTRUSION [None]
  - INTERVERTEBRAL DISC DISORDER [None]
  - ACTIVITIES OF DAILY LIVING IMPAIRED [None]
  - WEIGHT INCREASED [None]
  - MALAISE [None]
  - ABDOMINAL DISCOMFORT [None]
  - GAIT DISTURBANCE [None]
  - MASTOID DISORDER [None]
  - DRUG INEFFECTIVE [None]
  - PARAESTHESIA [None]
  - NERVE COMPRESSION [None]
  - OSTEOPOROSIS [None]
  - TINNITUS [None]
  - BACK PAIN [None]
